FAERS Safety Report 11596951 (Version 3)
Quarter: 2015Q4

REPORT INFORMATION
  Report Type: Spontaneous
  Country: JP (occurrence: JP)
  Receive Date: 20151006
  Receipt Date: 20151030
  Transmission Date: 20160304
  Serious: Yes (Hospitalization)
  Sender: FDA-Public Use
  Company Number: JP-GE HEALTHCARE MEDICAL DIAGNOSTICS-OMPQ-PR-1510S-2117

PATIENT
  Age: 73 Year
  Sex: Male
  Weight: 61 kg

DRUGS (15)
  1. OMNIPAQUE [Suspect]
     Active Substance: IOHEXOL
     Indication: PRODUCT USED FOR UNKNOWN INDICATION
     Dates: start: 20141109, end: 20141109
  2. OMNIPAQUE [Suspect]
     Active Substance: IOHEXOL
     Indication: DIAGNOSTIC PROCEDURE
  3. EFIENT [Suspect]
     Active Substance: PRASUGREL HYDROCHLORIDE
     Indication: ACUTE CORONARY SYNDROME
     Route: 048
     Dates: start: 20141109, end: 20141109
  4. ARTIST [Concomitant]
     Active Substance: CARVEDILOL
     Dates: start: 20141112
  5. DEPAS [Concomitant]
     Active Substance: ETIZOLAM
     Dates: start: 20141112
  6. EFIENT [Suspect]
     Active Substance: PRASUGREL HYDROCHLORIDE
     Dates: start: 20141110, end: 20141128
  7. CRESTOR [Concomitant]
     Active Substance: ROSUVASTATIN CALCIUM
     Dates: start: 20141111
  8. REMINYL [Concomitant]
     Active Substance: GALANTAMINE
     Dates: start: 20141110
  9. ASPIRIN. [Concomitant]
     Active Substance: ASPIRIN
     Dates: start: 20141109
  10. SIGMART [Concomitant]
     Active Substance: NICORANDIL
     Dates: start: 20141112
  11. PLAVIX [Concomitant]
     Active Substance: CLOPIDOGREL BISULFATE
     Dates: end: 20141108
  12. HEPARIN [Concomitant]
     Active Substance: HEPARIN SODIUM
     Dates: start: 20141109
  13. NEXIUM [Concomitant]
     Active Substance: ESOMEPRAZOLE MAGNESIUM
     Route: 048
     Dates: start: 20141110
  14. LASIX [Concomitant]
     Active Substance: FUROSEMIDE
     Dates: start: 20141118
  15. FEBURIC [Concomitant]
     Active Substance: FEBUXOSTAT
     Dates: start: 20141111

REACTIONS (1)
  - Chronic kidney disease [Recovering/Resolving]

NARRATIVE: CASE EVENT DATE: 20141110
